FAERS Safety Report 17480388 (Version 1)
Quarter: 2020Q1

REPORT INFORMATION
  Report Type: Spontaneous
  Country: US (occurrence: US)
  Receive Date: 20200228
  Receipt Date: 20200228
  Transmission Date: 20200409
  Serious: No
  Sender: FDA-Public Use
  Company Number: US-JNJFOC-20200224044

PATIENT
  Age: 43 Year
  Sex: Male
  Weight: 74.91 kg

DRUGS (1)
  1. MENS ROGAINE EXTRA STRENGTH [Suspect]
     Active Substance: MINOXIDIL
     Indication: ALOPECIA
     Dosage: HALF CAP EACH TIME I USED IT ONCE?LAST USED PRODUCT ON 09-FEB-2020.
     Route: 061
     Dates: start: 20200207

REACTIONS (3)
  - Inappropriate schedule of product administration [Unknown]
  - Application site rash [Recovered/Resolved]
  - Underdose [Unknown]

NARRATIVE: CASE EVENT DATE: 202002
